FAERS Safety Report 13250198 (Version 1)
Quarter: 2017Q1

REPORT INFORMATION
  Report Type: Spontaneous
  Country: US (occurrence: US)
  Receive Date: 20170218
  Receipt Date: 20170218
  Transmission Date: 20170428
  Serious: Yes (Hospitalization)
  Sender: FDA-Public Use
  Company Number: US-AXELLIA-001047

PATIENT
  Age: 68 Year
  Sex: Male
  Weight: 140 kg

DRUGS (3)
  1. DAPTOMYCIN. [Suspect]
     Active Substance: DAPTOMYCIN
     Indication: STAPHYLOCOCCAL INFECTION
     Route: 042
  2. VANCOMYCIN [Suspect]
     Active Substance: VANCOMYCIN
     Indication: STAPHYLOCOCCAL INFECTION
     Dosage: EVERY 12 H
     Route: 042
  3. LINEZOLID. [Concomitant]
     Active Substance: LINEZOLID
     Route: 042

REACTIONS (3)
  - Drug resistance [Unknown]
  - Rash [Unknown]
  - Skin exfoliation [Unknown]
